FAERS Safety Report 8089093-0 (Version None)
Quarter: 2012Q1

REPORT INFORMATION
  Report Type: 
  Country: None (occurrence: None)
  Receive Date: 20120128
  Receipt Date: 20110625
  Transmission Date: 20120608
  Serious: No
  Sender: FDA-Public Use
  Company Number: US-ABBOTT-11P-163-0834471-00

PATIENT
  Age: 43 Year
  Sex: Female

DRUGS (2)
  1. IRON [Concomitant]
     Indication: ANAEMIA
     Dosage: 3 PILLS DAILY
  2. HUMIRA [Suspect]
     Indication: RHEUMATOID ARTHRITIS
     Dates: start: 20110301

REACTIONS (3)
  - HEADACHE [None]
  - INJECTION SITE PRURITUS [None]
  - INJECTION SITE SWELLING [None]
